FAERS Safety Report 20537933 (Version 1)
Quarter: 2022Q1

REPORT INFORMATION
  Report Type: Spontaneous
  Country: CN (occurrence: None)
  Receive Date: 20220302
  Receipt Date: 20220302
  Transmission Date: 20220423
  Serious: Yes (Other)
  Sender: FDA-Public Use
  Company Number: CN-ROCHE-3030336

PATIENT
  Age: 47 Year
  Sex: Male
  Weight: 64 kg

DRUGS (3)
  1. CAPECITABINE [Suspect]
     Active Substance: CAPECITABINE
     Indication: Gastric cancer
     Route: 048
     Dates: start: 20211229, end: 20220204
  2. ACETAMINOPHEN [Suspect]
     Active Substance: ACETAMINOPHEN
     Indication: Gastric cancer
     Route: 048
     Dates: start: 20220119, end: 20220204
  3. BERBERINE [Concomitant]
     Active Substance: BERBERINE
     Indication: Gastric cancer
     Route: 048
     Dates: start: 20220113, end: 20220129

REACTIONS (2)
  - Hepatic function abnormal [Recovering/Resolving]
  - Mixed liver injury [Recovering/Resolving]

NARRATIVE: CASE EVENT DATE: 20220203
